FAERS Safety Report 5600130-2 (Version None)
Quarter: 2008Q1

REPORT INFORMATION
  Report Type: 
  Country: None (occurrence: None)
  Receive Date: 20080123
  Receipt Date: 20080114
  Transmission Date: 20080703
  Serious: Yes (Death, Congenital Anomaly)
  Sender: FDA-Public Use
  Company Number: B0504272A

PATIENT
  Sex: Male

DRUGS (3)
  1. LAMICTAL [Suspect]
     Indication: BIPOLAR DISORDER
     Dosage: 200MG PER DAY
     Dates: start: 20070109, end: 20070619
  2. ESCITALOPRAM [Concomitant]
     Dates: start: 20070109, end: 20070101
  3. INSULATARD [Concomitant]
     Route: 065
     Dates: start: 20070109, end: 20070619

REACTIONS (4)
  - BICUSPID PULMONARY VALVE [None]
  - CONGENITAL CORONARY ARTERY MALFORMATION [None]
  - CONGENITAL GREAT VESSEL ANOMALY [None]
  - HEART DISEASE CONGENITAL [None]
